FAERS Safety Report 23682673 (Version 1)
Quarter: 2024Q1

REPORT INFORMATION
  Report Type: Spontaneous
  Country: US (occurrence: None)
  Receive Date: 20240327
  Receipt Date: 20240327
  Transmission Date: 20240409
  Serious: Yes (Hospitalization)
  Sender: FDA-Public Use
  Company Number: None

PATIENT
  Age: 34 Year
  Sex: Female
  Weight: 54 kg

DRUGS (1)
  1. GAMMAGARD S/D [Suspect]
     Active Substance: HUMAN IMMUNOGLOBULIN G
     Dosage: 25 G GRAM(S) EVERY 4 WEEKS INTRAVENOUS
     Route: 042

REACTIONS (11)
  - Infusion related reaction [None]
  - Pain [None]
  - Brain fog [None]
  - Feeling abnormal [None]
  - Chills [None]
  - Headache [None]
  - Bone pain [None]
  - Arthralgia [None]
  - Pyrexia [None]
  - Fatigue [None]
  - Blood pressure increased [None]

NARRATIVE: CASE EVENT DATE: 20240325
